FAERS Safety Report 23961352 (Version 2)
Quarter: 2024Q3

REPORT INFORMATION
  Report Type: Report from Study
  Country: KR (occurrence: KR)
  Receive Date: 20240611
  Receipt Date: 20240725
  Transmission Date: 20241017
  Serious: Yes (Other)
  Sender: TAKEDA
  Company Number: KR-TAKEDA-2024TUS055991

PATIENT
  Sex: Female

DRUGS (7)
  1. BRIGATINIB [Suspect]
     Active Substance: BRIGATINIB
     Indication: Non-small cell lung cancer
     Dosage: 90 MILLIGRAM, QD
     Route: 048
     Dates: start: 20230509, end: 20230515
  2. BRIGATINIB [Suspect]
     Active Substance: BRIGATINIB
     Dosage: 180 MILLIGRAM, QD
     Route: 048
     Dates: start: 20230516
  3. ARIMIDEX [Concomitant]
     Active Substance: ANASTROZOLE
     Indication: Prophylaxis
     Dosage: 1 MILLIGRAM, QD
     Route: 048
     Dates: start: 20201105
  4. Calcio [Concomitant]
     Indication: Vitamin supplementation
     Dosage: 0.5 MICROGRAM, QD
     Route: 048
     Dates: start: 20201105
  5. VALTREP PLUS [Concomitant]
     Indication: Hypertension
     Dosage: UNK
     Route: 048
  6. Pennel [Concomitant]
     Indication: Liver function test increased
     Dosage: UNK
     Route: 048
     Dates: start: 20230613
  7. DIETARY SUPPLEMENT\HERBALS\MILK THISTLE [Concomitant]
     Active Substance: MILK THISTLE
     Indication: Liver function test increased
     Dosage: UNK
     Route: 048
     Dates: start: 20230613

REACTIONS (1)
  - Diabetes mellitus [Recovering/Resolving]

NARRATIVE: CASE EVENT DATE: 20240322
